FAERS Safety Report 17093393 (Version 1)
Quarter: 2019Q4

REPORT INFORMATION
  Report Type: Report from Study
  Country: IN (occurrence: IN)
  Receive Date: 20191129
  Receipt Date: 20191129
  Transmission Date: 20200122
  Serious: Yes (Other)
  Sender: FDA-Public Use
  Company Number: NVSC2019IN047402

PATIENT
  Age: 68 Year
  Sex: Female

DRUGS (12)
  1. KRYXANA [Suspect]
     Active Substance: RIBOCICLIB
     Indication: BREAST CANCER
     Dosage: 600 MG, QD
     Route: 048
     Dates: start: 20190503, end: 20190724
  2. NEOGADINE [Concomitant]
     Indication: PRODUCT USED FOR UNKNOWN INDICATION
     Dosage: 2 (TSF TDS)
     Route: 048
  3. DOMSTAL [Concomitant]
     Indication: NAUSEA
     Dosage: 1 TAB TDS
     Route: 048
     Dates: start: 201905
  4. IMODIUM [Concomitant]
     Active Substance: LOPERAMIDE HYDROCHLORIDE
     Indication: DIARRHOEA
     Dosage: 1 DF
     Route: 048
  5. FULVESTRANT. [Concomitant]
     Active Substance: FULVESTRANT
     Indication: BREAST CANCER
     Dosage: 500 MG (ONCE IN EVERY 15)
     Route: 030
     Dates: start: 20191115
  6. ZOLEDRONIC ACID [Concomitant]
     Active Substance: ZOLEDRONIC ACID
     Indication: PRODUCT USED FOR UNKNOWN INDICATION
     Dosage: 4 MG, QMO
     Route: 042
  7. LETROZOLE. [Concomitant]
     Active Substance: LETROZOLE
     Indication: BREAST CANCER
     Dosage: 2.5 MG, QD
     Route: 048
     Dates: end: 20191115
  8. KRYXANA [Suspect]
     Active Substance: RIBOCICLIB
     Dosage: 400 MG, QD
     Route: 048
     Dates: start: 20190725, end: 20191115
  9. NORMAXIN [Concomitant]
     Active Substance: CHLORDIAZEPOXIDE\CLIDINIUM BROMIDE\DICYCLOMINE HYDROCHLORIDE
     Indication: MUSCLE SPASMS
     Dosage: 1 DF
     Route: 048
  10. ATEN [Concomitant]
     Indication: HYPERTENSION
     Dosage: 1 TAB OD
     Route: 048
  11. CALCIMAX [Concomitant]
     Active Substance: CALCIUM CARBONATE\CHOLECALCIFEROL
     Indication: HYPOCALCAEMIA
     Dosage: 2 TSP, BID
     Route: 048
     Dates: start: 201905
  12. EVEROLIMUS. [Concomitant]
     Active Substance: EVEROLIMUS
     Indication: BREAST CANCER
     Dosage: 5 MG, QD
     Route: 048
     Dates: start: 20191115

REACTIONS (7)
  - Malignant neoplasm progression [Not Recovered/Not Resolved]
  - Liver function test abnormal [Unknown]
  - Breast cancer [Not Recovered/Not Resolved]
  - Metastases to bone [Not Recovered/Not Resolved]
  - Back pain [Not Recovered/Not Resolved]
  - Metastases to liver [Not Recovered/Not Resolved]
  - Drug resistance [Not Recovered/Not Resolved]

NARRATIVE: CASE EVENT DATE: 201911
